FAERS Safety Report 4843021-7 (Version None)
Quarter: 2005Q4

REPORT INFORMATION
  Report Type: 
  Country: None (occurrence: None)
  Receive Date: 20051201
  Receipt Date: 20051123
  Transmission Date: 20060501
  Serious: Yes (Death, Hospitalization)
  Sender: FDA-Public Use
  Company Number: AU-ROCHE-425964

PATIENT
  Age: 74 Year
  Sex: Female

DRUGS (6)
  1. XELODA [Suspect]
     Route: 048
  2. SOMAC [Concomitant]
  3. HYDRENE [Concomitant]
  4. METOPROLOL [Concomitant]
  5. PREDNISOLONE [Concomitant]
  6. PYRIDOXINE HCL [Concomitant]

REACTIONS (3)
  - COLITIS [None]
  - DEHYDRATION [None]
  - DIARRHOEA [None]
